FAERS Safety Report 12099504 (Version 2)
Quarter: 2016Q2

REPORT INFORMATION
  Report Type: Spontaneous
  Country: US (occurrence: US)
  Receive Date: 20160222
  Receipt Date: 20160411
  Transmission Date: 20160815
  Serious: No
  Sender: FDA-Public Use
  Company Number: US-PFIZER INC-2016044104

PATIENT
  Age: 11 Year
  Sex: Female
  Weight: 41 kg

DRUGS (32)
  1. FENTANYL CITRATE. [Suspect]
     Active Substance: FENTANYL CITRATE
     Indication: PAIN
     Dosage: 60 UG, 1X/DAY (PRN)
     Route: 045
     Dates: start: 20151209, end: 20151212
  2. MORPHINE SULFATE. [Suspect]
     Active Substance: MORPHINE SULFATE
     Dosage: 4 MG, AS NEEDED (Q3H)
     Route: 042
     Dates: start: 20151209, end: 20151211
  3. ALBUTEROL HFA [Concomitant]
     Active Substance: ALBUTEROL SULFATE
     Indication: COUGH
  4. ZOFRAN [Concomitant]
     Active Substance: ONDANSETRON HYDROCHLORIDE
     Indication: NAUSEA
     Dosage: 4 MG, AS NEEDED (EVERY 8 HOURS)
     Route: 048
     Dates: start: 20100826
  5. ZANTAC [Concomitant]
     Active Substance: RANITIDINE HYDROCHLORIDE
     Indication: DYSPEPSIA
     Dosage: 75 MG, 2X/DAY
     Route: 048
     Dates: start: 20130910
  6. MORPHINE SULFATE. [Suspect]
     Active Substance: MORPHINE SULFATE
     Indication: SICKLE CELL ANAEMIA WITH CRISIS
     Dosage: 4 MG,
     Route: 042
     Dates: start: 20151209, end: 20151209
  7. MORPHINE SULFATE. [Suspect]
     Active Substance: MORPHINE SULFATE
     Dosage: 4 MG,
     Route: 042
     Dates: start: 20151211, end: 20151211
  8. MORPHINE SULFATE. [Suspect]
     Active Substance: MORPHINE SULFATE
     Dosage: 4 MG,
     Route: 042
     Dates: start: 20151213, end: 20151213
  9. MORPHINE SULFATE. [Suspect]
     Active Substance: MORPHINE SULFATE
     Dosage: 4 MG,
     Route: 042
     Dates: start: 20151215, end: 20151215
  10. COMPAZINE [Concomitant]
     Active Substance: PROCHLORPERAZINE MALEATE
     Indication: MIGRAINE
     Dosage: 5 MG, AS NEEDED (EVERY 12 HOURS)
     Route: 048
     Dates: start: 20141003
  11. MORPHINE SULFATE. [Suspect]
     Active Substance: MORPHINE SULFATE
     Dosage: 4 MG,
     Route: 042
     Dates: start: 20151214, end: 20151214
  12. MOTRIN CHILDREN [Concomitant]
     Active Substance: IBUPROFEN
     Dosage: 400 MG, UNK
     Route: 048
  13. FLEXERIL [Concomitant]
     Active Substance: CYCLOBENZAPRINE HYDROCHLORIDE
     Indication: MUSCLE SPASMS
     Dosage: 5 MG, 2X/DAY (PRN)
     Route: 048
     Dates: start: 20141117
  14. SINGULAIR [Concomitant]
     Active Substance: MONTELUKAST SODIUM
     Indication: ASTHMA
     Dosage: 5 MG, 1X/DAY
     Route: 048
     Dates: start: 20091016
  15. COMPAZINE [Concomitant]
     Active Substance: PROCHLORPERAZINE MALEATE
     Indication: HEADACHE
  16. MORPHINE SULFATE. [Suspect]
     Active Substance: MORPHINE SULFATE
     Dosage: 4 MG, AS NEEDED (Q3H)
     Route: 042
     Dates: start: 20151212, end: 20151216
  17. FIORICET [Concomitant]
     Active Substance: ACETAMINOPHEN\BUTALBITAL\CAFFEINE
     Indication: HEADACHE
     Dosage: 415 MG, AS NEEDED EVERY 6 HOURS (ACETAMINOPHEN-CAFFEINE-BUTALBITAL 325 MG-40 MG-50 MG)
     Route: 048
     Dates: start: 20140304
  18. MIRALAX [Concomitant]
     Active Substance: POLYETHYLENE GLYCOL 3350
     Indication: CONSTIPATION
     Dosage: 17 G, 2X/DAY
     Route: 048
     Dates: start: 20100825
  19. TOPAMAX [Concomitant]
     Active Substance: TOPIRAMATE
     Indication: HEADACHE
     Dosage: 100 MG, 1X/DAY (TAKE 2 TABS (50 MG) AT BEDTIME)
     Route: 048
     Dates: start: 20140316
  20. MORPHINE SULFATE. [Suspect]
     Active Substance: MORPHINE SULFATE
     Dosage: 4 MG,
     Route: 042
     Dates: start: 20151210, end: 20151210
  21. ALBUTEROL HFA [Concomitant]
     Active Substance: ALBUTEROL SULFATE
     Indication: DYSPNOEA
     Dosage: 4 DF, EVERY 4 HRS (AS NEEDED)
     Route: 045
     Dates: start: 20091016
  22. FOLVITE [Concomitant]
     Active Substance: FOLIC ACID
     Indication: HYPOVITAMINOSIS
     Dosage: 1 MG, 1X/DAY
     Route: 048
     Dates: start: 20091016
  23. MILK OF MAGNESIA [Concomitant]
     Active Substance: MAGNESIUM HYDROXIDE
     Indication: CONSTIPATION
     Dosage: 15 ML, 1X/DAY (400MG/5ML)
     Route: 048
     Dates: start: 20130311
  24. PERCOCET [Concomitant]
     Active Substance: ACETAMINOPHEN\OXYCODONE HYDROCHLORIDE
     Indication: PAIN
     Dosage: 1 DF, EVERY 4 HRS (OXYCODONE-ACETAMINOPHEN 7.5 MG-325 MG AS NEEDED )
  25. MORPHINE SULFATE. [Suspect]
     Active Substance: MORPHINE SULFATE
     Dosage: 4 MG,
     Route: 042
     Dates: start: 20151212, end: 20151212
  26. MORPHINE SULFATE. [Suspect]
     Active Substance: MORPHINE SULFATE
     Dosage: 4 MG,
     Route: 042
     Dates: start: 20151216, end: 20151216
  27. LORTAB [Suspect]
     Active Substance: ACETAMINOPHEN\HYDROCODONE BITARTRATE
     Indication: PAIN
     Dosage: 8.26 MG, UNK
     Route: 048
     Dates: start: 20151209, end: 20151209
  28. TORADOL [Suspect]
     Active Substance: KETOROLAC TROMETHAMINE
     Indication: PAIN
     Dosage: 20.7 MG, UNK (Q6H)
     Route: 042
     Dates: start: 20151209, end: 20151212
  29. ADVAIR HFA [Concomitant]
     Active Substance: FLUTICASONE PROPIONATE\SALMETEROL XINAFOATE
     Indication: ASTHMA
     Dosage: 2 DF, 2X/DAY (115-21 MCG/ACTUATION)
     Route: 048
     Dates: start: 20090628
  30. HYDROXYUREA. [Concomitant]
     Active Substance: HYDROXYUREA
     Indication: SICKLE CELL ANAEMIA
     Dosage: 1000 MG, 1X/DAY (TAKE 2 CAPS 500 MG)
     Route: 048
     Dates: start: 20120327
  31. NASONEX [Concomitant]
     Active Substance: MOMETASONE FUROATE
     Indication: HYPERSENSITIVITY
     Dosage: 1 DF, 1X/DAY (50 MCG/ACTUATION)
     Route: 045
     Dates: start: 20100825
  32. ZOFRAN [Concomitant]
     Active Substance: ONDANSETRON HYDROCHLORIDE
     Indication: VOMITING

REACTIONS (1)
  - Drug ineffective [Unknown]
